FAERS Safety Report 9190242 (Version 2)
Quarter: 2013Q2

REPORT INFORMATION
  Report Type: Spontaneous
  Country: US (occurrence: US)
  Receive Date: 20130326
  Receipt Date: 20130408
  Transmission Date: 20140414
  Serious: Yes (Other)
  Sender: FDA-Public Use
  Company Number: US-AMGEN-USASP2013018935

PATIENT
  Age: 77 Year
  Sex: Male
  Weight: 60.32 kg

DRUGS (6)
  1. XGEVA [Suspect]
     Indication: METASTASES TO BONE
     Dosage: 120 MG, QMO
     Route: 058
     Dates: start: 20111019, end: 20121206
  2. ELIGARD [Concomitant]
     Indication: PROSTATE CANCER
     Dosage: 22.5 MG, Q3MO
     Route: 058
  3. OXYCONTIN [Concomitant]
     Dosage: 20 MG, Q8H
     Route: 048
  4. LORTAB                             /00607101/ [Concomitant]
     Route: 048
  5. CASODEX [Concomitant]
     Route: 048
  6. METOPROLOL [Concomitant]
     Route: 048

REACTIONS (3)
  - Osteonecrosis of jaw [Not Recovered/Not Resolved]
  - Tooth disorder [Not Recovered/Not Resolved]
  - Tooth infection [Unknown]
